FAERS Safety Report 9495714 (Version 2)
Quarter: 2013Q4

REPORT INFORMATION
  Report Type: Spontaneous
  Country: US (occurrence: US)
  Receive Date: 20130903
  Receipt Date: 20131003
  Transmission Date: 20140711
  Serious: Yes (Other)
  Sender: FDA-Public Use
  Company Number: US-UCBSA-096240

PATIENT
  Age: 62 Year
  Sex: Female
  Weight: 73.93 kg

DRUGS (6)
  1. VIMPAT [Suspect]
     Indication: COMPLEX PARTIAL SEIZURES
     Dates: start: 20110906
  2. LAMICTAL [Concomitant]
     Indication: EPILEPSY
     Dosage: 100MG IN AM AND 200MG IN PM X 14 YEARS
  3. BYSTOLIC [Concomitant]
     Dosage: DAILY DOSE: 5 MG
  4. ASPIRIN [Concomitant]
     Dosage: DAILY
  5. CALCIUM [Concomitant]
  6. ADVIL [Concomitant]

REACTIONS (4)
  - Urticaria [Not Recovered/Not Resolved]
  - Tremor [Unknown]
  - Balance disorder [Unknown]
  - Memory impairment [Unknown]
